FAERS Safety Report 5270843-3 (Version None)
Quarter: 2007Q1

REPORT INFORMATION
  Report Type: 
  Country: None (occurrence: None)
  Receive Date: 20070321
  Receipt Date: 20070312
  Transmission Date: 20070707
  Serious: Yes (Death)
  Sender: FDA-Public Use
  Company Number: US-ABBOTT-06P-163-0335634-00

PATIENT
  Sex: Female
  Weight: 49.032 kg

DRUGS (7)
  1. HUMIRA [Suspect]
     Indication: RHEUMATOID ARTHRITIS
     Dates: start: 20040101, end: 20060101
  2. HUMIRA [Suspect]
     Dates: start: 20060101, end: 20060301
  3. METHADONE HCL [Concomitant]
     Indication: PAIN
  4. VENLAFAXINE HYDROCHLORIDE [Concomitant]
     Indication: DEPRESSION
  5. DEXAMETHASONE [Concomitant]
     Indication: RHEUMATOID ARTHRITIS
  6. OXYBUTYNIN CHLORIDE [Concomitant]
     Indication: INCONTINENCE
  7. OMEPRAZOLE [Concomitant]
     Indication: GASTROOESOPHAGEAL REFLUX DISEASE

REACTIONS (4)
  - BEDRIDDEN [None]
  - ORAL INTAKE REDUCED [None]
  - PAIN [None]
  - RHEUMATOID ARTHRITIS [None]
